FAERS Safety Report 15995496 (Version 1)
Quarter: 2019Q1

REPORT INFORMATION
  Report Type: Spontaneous
  Country: US (occurrence: US)
  Receive Date: 20190222
  Receipt Date: 20190222
  Transmission Date: 20190418
  Serious: No
  Sender: FDA-Public Use
  Company Number: US-ENDO PHARMACEUTICALS INC-2018-042686

PATIENT
  Age: 58 Year
  Sex: Female

DRUGS (1)
  1. AMILORIDE HYDROCHLORIDE. [Suspect]
     Active Substance: AMILORIDE HYDROCHLORIDE
     Indication: OFF LABEL USE
     Dosage: 5 MG, DAILY
     Route: 065
     Dates: start: 20181029

REACTIONS (2)
  - Palpitations [Not Recovered/Not Resolved]
  - Off label use [Unknown]

NARRATIVE: CASE EVENT DATE: 20181029
